FAERS Safety Report 8775131 (Version 1)
Quarter: 2012Q4

REPORT INFORMATION
  Report Type: 
  Country: US (occurrence: US)
  Receive Date: 20120910
  Receipt Date: 20120910
  Transmission Date: 20130627
  Serious: No
  Sender: FDA-Public Use
  Company Number: US-B.I. PHARMACEUTICALS,INC./RIDGEFIELD-2012-BP-22201PF

PATIENT

DRUGS (1)
  1. SPIRIVA [Suspect]

REACTIONS (2)
  - Blindness [Unknown]
  - Dysuria [Unknown]
